FAERS Safety Report 9874017 (Version 2)
Quarter: 2014Q1

REPORT INFORMATION
  Report Type: Other
  Country: US (occurrence: US)
  Receive Date: 20140206
  Receipt Date: 20140206
  Transmission Date: 20141002
  Serious: No
  Sender: FDA-Public Use
  Company Number: US-ACORDA-ACO_34953_2013

PATIENT
  Sex: Male

DRUGS (3)
  1. AMPYRA [Suspect]
     Indication: GAIT DISTURBANCE
     Dosage: 10 MG, BID
     Dates: start: 20130226
  2. VALIUM [Concomitant]
     Indication: DEPRESSION
     Dosage: 2 MG, QID
     Route: 048
  3. LEXAPRO [Concomitant]
     Indication: DEPRESSION
     Dosage: 20 MG, QD
     Route: 048

REACTIONS (2)
  - Pain [Unknown]
  - Asthenia [Unknown]
